FAERS Safety Report 8436943-1 (Version None)
Quarter: 2012Q2

REPORT INFORMATION
  Report Type: 
  Country: None (occurrence: None)
  Receive Date: 20120614
  Receipt Date: 20120531
  Transmission Date: 20120825
  Serious: Yes (Hospitalization)
  Sender: FDA-Public Use
  Company Number: US-BAYER-2012-056902

PATIENT
  Age: 56 Year
  Sex: Male

DRUGS (4)
  1. XARELTO [Interacting]
     Indication: ATRIAL FIBRILLATION
     Route: 048
     Dates: start: 20120524
  2. ASPIRIN [Suspect]
  3. XARELTO [Interacting]
     Indication: CEREBROVASCULAR ACCIDENT PROPHYLAXIS
  4. FISH OIL [Concomitant]
     Dates: end: 20120501

REACTIONS (2)
  - CONJUNCTIVAL HAEMORRHAGE [None]
  - MOUTH HAEMORRHAGE [None]
